FAERS Safety Report 13433464 (Version 1)
Quarter: 2017Q2

REPORT INFORMATION
  Report Type: Spontaneous
  Country: GB (occurrence: GB)
  Receive Date: 20170412
  Receipt Date: 20170412
  Transmission Date: 20170830
  Serious: Yes (Other)
  Sender: FDA-Public Use
  Company Number: GB-JNJFOC-20170407227

PATIENT

DRUGS (1)
  1. IBRUTINIB [Suspect]
     Active Substance: IBRUTINIB
     Indication: MANTLE CELL LYMPHOMA
     Route: 048

REACTIONS (9)
  - Anaemia [Unknown]
  - Diarrhoea [Unknown]
  - Contusion [Unknown]
  - Fatigue [Unknown]
  - Thrombocytopenia [Unknown]
  - Infection [Unknown]
  - Atrial fibrillation [Unknown]
  - Neutropenia [Unknown]
  - Haemorrhage [Unknown]
